FAERS Safety Report 7200959-3 (Version None)
Quarter: 2010Q4

REPORT INFORMATION
  Report Type: 
  Country: None (occurrence: None)
  Receive Date: 20101228
  Receipt Date: 20101220
  Transmission Date: 20110411
  Serious: Yes (Other)
  Sender: FDA-Public Use
  Company Number: JP-PFIZER INC-2010175984

PATIENT
  Age: 62 Year
  Sex: Male

DRUGS (1)
  1. CHAMPIX [Suspect]
     Dosage: 2MG DAILY
     Route: 048
     Dates: end: 20101120

REACTIONS (4)
  - DECREASED APPETITE [None]
  - DIABETES MELLITUS [None]
  - ORAL MUCOSA EROSION [None]
  - STOMATITIS [None]
